FAERS Safety Report 9319476 (Version 20)
Quarter: 2016Q1

REPORT INFORMATION
  Report Type: Spontaneous
  Country: US (occurrence: US)
  Receive Date: 20130530
  Receipt Date: 20160330
  Transmission Date: 20160526
  Serious: Yes (Hospitalization, Other)
  Sender: FDA-Public Use
  Company Number: US-GLAXOSMITHKLINE-A0989064A

PATIENT
  Age: 52 Year
  Sex: Female
  Weight: 99.5 kg

DRUGS (47)
  1. FLOLAN [Suspect]
     Active Substance: EPOPROSTENOL SODIUM
     Indication: PULMONARY HYPERTENSION
     Dosage: UNK
     Dates: start: 20090603
  2. FLOLAN [Suspect]
     Active Substance: EPOPROSTENOL SODIUM
     Dosage: UNK
     Dates: start: 20090603
  3. FLOLAN [Suspect]
     Active Substance: EPOPROSTENOL SODIUM
     Dosage: UNK
     Dates: start: 20090611
  4. RANITIDINE [Concomitant]
     Active Substance: RANITIDINE\RANITIDINE HYDROCHLORIDE
  5. ONDANSETRON [Concomitant]
     Active Substance: ONDANSETRON
  6. RED YEAST RICE [Concomitant]
     Active Substance: DIETARY SUPPLEMENT
  7. DOXYCYCLINE. [Concomitant]
     Active Substance: DOXYCYCLINE
  8. CHLORPHENIRAMINE + HYDROCODONE [Concomitant]
     Active Substance: CHLORPHENIRAMINE HYDROCHLORIDE\HYDROCODONE
  9. WARFARIN SODIUM. [Concomitant]
     Active Substance: WARFARIN SODIUM
  10. FLOLAN [Suspect]
     Active Substance: EPOPROSTENOL SODIUM
     Dosage: 22 NG/KG/MIN (VIAL STRENGTH 1.5 MG/ML), CO
     Route: 042
  11. FEXOFENADINE HYDROCHLORIDE. [Concomitant]
     Active Substance: FEXOFENADINE HYDROCHLORIDE
  12. METAXALONE. [Concomitant]
     Active Substance: METAXALONE
  13. LYRICA [Concomitant]
     Active Substance: PREGABALIN
  14. GUAIFENESIN. [Concomitant]
     Active Substance: GUAIFENESIN
  15. COUMADIN [Concomitant]
     Active Substance: WARFARIN SODIUM
  16. FLOLAN [Suspect]
     Active Substance: EPOPROSTENOL SODIUM
     Dosage: UNK
     Dates: start: 20090603
  17. FLOLAN [Suspect]
     Active Substance: EPOPROSTENOL SODIUM
     Dosage: UNK
  18. GLUCOSAMINE COMPLEX [Concomitant]
     Active Substance: GLUCOSAMINE\GLUCOSAMINE SULFATE
  19. FERROUS SULFATE [Concomitant]
     Active Substance: FERROUS SULFATE\FERROUS SULFATE, DRIED
  20. FLOLAN [Suspect]
     Active Substance: EPOPROSTENOL SODIUM
     Dosage: UNK
     Dates: start: 20090603
  21. FLOLAN [Suspect]
     Active Substance: EPOPROSTENOL SODIUM
     Dosage: 20 NG/KG/MIN
     Route: 042
  22. ADCIRCA [Concomitant]
     Active Substance: TADALAFIL
  23. SYNTHROID [Concomitant]
     Active Substance: LEVOTHYROXINE SODIUM
  24. MANGANESE GLUCONATE. [Concomitant]
     Active Substance: MANGANESE GLUCONATE
  25. COENZYME Q10 [Concomitant]
     Active Substance: UBIDECARENONE
  26. PRILOSEC [Concomitant]
     Active Substance: OMEPRAZOLE MAGNESIUM
  27. FLOLAN [Suspect]
     Active Substance: EPOPROSTENOL SODIUM
     Dosage: 20 NG/KG/MIN CONTINUOUS; CONCENTRATION: 45,000 NG/ML; PUMP RATE: 62 ML/DAY; VIAL STRENGTH: 1.5 MG
     Dates: start: 20090611
  28. FLOLAN [Suspect]
     Active Substance: EPOPROSTENOL SODIUM
     Dosage: 20 NG/KG/MIN
     Route: 042
  29. FLOLAN [Suspect]
     Active Substance: EPOPROSTENOL SODIUM
     Dosage: UNK, CO
     Dates: start: 20090610
  30. NASONEX [Concomitant]
     Active Substance: MOMETASONE FUROATE
  31. FLOLAN [Suspect]
     Active Substance: EPOPROSTENOL SODIUM
     Dosage: UNK
     Dates: start: 20090603
  32. MAGNESIUM [Concomitant]
     Active Substance: MAGNESIUM
  33. EFFEXOR XR [Concomitant]
     Active Substance: VENLAFAXINE HYDROCHLORIDE
  34. FINACEA [Concomitant]
     Active Substance: AZELAIC ACID
  35. CLONAZEPAM. [Concomitant]
     Active Substance: CLONAZEPAM
  36. LOSARTAN POTASSIUM. [Concomitant]
     Active Substance: LOSARTAN POTASSIUM
  37. FLOLAN [Suspect]
     Active Substance: EPOPROSTENOL SODIUM
     Dosage: 20 NG/KG/MIN CONTINUOUSLY
  38. FLOLAN [Suspect]
     Active Substance: EPOPROSTENOL SODIUM
     Dosage: UNK
  39. FLOLAN [Suspect]
     Active Substance: EPOPROSTENOL SODIUM
     Dosage: 20 NG/KG/MIN CONTINUOUSLY
     Dates: start: 20090610
  40. TORSEMIDE. [Concomitant]
     Active Substance: TORSEMIDE
  41. FLOLAN [Suspect]
     Active Substance: EPOPROSTENOL SODIUM
     Indication: PULMONARY ARTERIAL HYPERTENSION
     Dosage: 16 NG/KG/MIN CONTINUOUSLYDOSE: 20 NG/KG/MIN CONTINUOUSLYCONCENTRATION: 45,000 NG/MLVIAL STREGNT[...]
     Route: 042
     Dates: start: 20090603
  42. FLOLAN [Suspect]
     Active Substance: EPOPROSTENOL SODIUM
     Dosage: UNK
     Dates: start: 20090603
  43. FLOLAN [Suspect]
     Active Substance: EPOPROSTENOL SODIUM
     Dosage: UNK
     Dates: start: 20090603
  44. FLOLAN [Suspect]
     Active Substance: EPOPROSTENOL SODIUM
     Dosage: UNK
     Dates: start: 20090603
  45. FLOLAN [Suspect]
     Active Substance: EPOPROSTENOL SODIUM
     Dosage: 20 NG/KG/MIN CONTINUOUSLY
     Dates: start: 20090610
  46. TRAMADOL. [Concomitant]
     Active Substance: TRAMADOL
  47. GLUCAGON. [Concomitant]
     Active Substance: GLUCAGON

REACTIONS (34)
  - Catheter site discharge [Recovering/Resolving]
  - Pain in extremity [Not Recovered/Not Resolved]
  - Malaise [Not Recovered/Not Resolved]
  - Medical device change [Unknown]
  - Muscle spasms [Recovered/Resolved]
  - Ill-defined disorder [Recovered/Resolved]
  - Fatigue [Not Recovered/Not Resolved]
  - Jugular vein thrombosis [Unknown]
  - Complication associated with device [Unknown]
  - Muscle strain [Unknown]
  - Cough [Unknown]
  - Headache [Not Recovered/Not Resolved]
  - Rash [Recovering/Resolving]
  - Catheter site infection [Unknown]
  - Sinusitis [Unknown]
  - Diarrhoea [Recovering/Resolving]
  - Feeling hot [Not Recovered/Not Resolved]
  - Ovarian cyst [Unknown]
  - Pain in jaw [Unknown]
  - Weight decreased [Unknown]
  - Vaginal haemorrhage [Unknown]
  - Vertigo [Unknown]
  - Suture insertion [Unknown]
  - Chest pain [Unknown]
  - Central venous catheterisation [Unknown]
  - Device related infection [Unknown]
  - Ear infection [Unknown]
  - Infusion site cellulitis [Recovered/Resolved]
  - Cellulitis [Unknown]
  - Allergic sinusitis [Recovered/Resolved]
  - Catheter site erythema [Recovering/Resolving]
  - Upper respiratory tract infection [Unknown]
  - Skin irritation [Unknown]
  - Influenza [Unknown]

NARRATIVE: CASE EVENT DATE: 20120612
